FAERS Safety Report 4626909-1 (Version None)
Quarter: 2005Q1

REPORT INFORMATION
  Report Type: 
  Country: None (occurrence: None)
  Receive Date: 20050331
  Receipt Date: 20050321
  Transmission Date: 20050727
  Serious: Yes (Hospitalization, Other)
  Sender: FDA-Public Use
  Company Number: 2005048087

PATIENT
  Age: 74 Year
  Sex: Female

DRUGS (2)
  1. CABERGOLINE [Suspect]
     Indication: PARKINSON'S DISEASE
     Dosage: SEE IMAGE, ORAL
     Route: 048
     Dates: start: 20040901
  2. CABERGOLINE [Suspect]
     Indication: PARKINSON'S DISEASE
     Dosage: SEE IMAGE, ORAL
     Route: 048
     Dates: start: 20041201

REACTIONS (7)
  - CARDIAC FAILURE ACUTE [None]
  - DIARRHOEA [None]
  - DILATATION ATRIAL [None]
  - HYPERTENSION [None]
  - MITRAL VALVE INCOMPETENCE [None]
  - PULMONARY HYPERTENSION [None]
  - TRICUSPID VALVE INCOMPETENCE [None]
